FAERS Safety Report 5707089-8 (Version None)
Quarter: 2008Q2

REPORT INFORMATION
  Report Type: 
  Country: None (occurrence: None)
  Receive Date: 20080416
  Receipt Date: 20080407
  Transmission Date: 20081010
  Serious: Yes (Other)
  Sender: FDA-Public Use
  Company Number: CA-JNJFOC-20080402515

PATIENT

DRUGS (2)
  1. REMICADE [Suspect]
     Dosage: 9TH INFUSION
     Route: 042
  2. REMICADE [Suspect]
     Indication: CROHN'S DISEASE
     Dosage: 8 INFUSIONS ON UNKNOWN DATES
     Route: 042

REACTIONS (1)
  - NECK MASS [None]
